FAERS Safety Report 8106089-0 (Version None)
Quarter: 2012Q1

REPORT INFORMATION
  Report Type: 
  Country: None (occurrence: None)
  Receive Date: 20120202
  Receipt Date: 20120130
  Transmission Date: 20120608
  Serious: No
  Sender: FDA-Public Use
  Company Number: US-PFIZER INC-2012025204

PATIENT
  Sex: Female
  Weight: 40.816 kg

DRUGS (3)
  1. IBUPROFEN (ADVIL) [Suspect]
     Indication: BACK PAIN
     Dosage: UNK
     Route: 048
     Dates: start: 20120101
  2. LORAZEPAM [Concomitant]
     Indication: NERVOUS SYSTEM DISORDER
     Dosage: UNK
  3. IBUPROFEN (ADVIL) [Suspect]
     Indication: HEADACHE
     Dosage: 200 MG, 2X/DAY
     Route: 048
     Dates: start: 20120101, end: 20120101

REACTIONS (1)
  - DRY MOUTH [None]
